FAERS Safety Report 7530473-7 (Version None)
Quarter: 2011Q2

REPORT INFORMATION
  Report Type: 
  Country: None (occurrence: None)
  Receive Date: 20110607
  Receipt Date: 20110526
  Transmission Date: 20111010
  Serious: Yes (Other)
  Sender: FDA-Public Use
  Company Number: US-BAYER-2011-046711

PATIENT
  Age: 51 Year
  Sex: Female
  Weight: 74.83 kg

DRUGS (2)
  1. MULTIVITAMINS, COMBINATIONS [Concomitant]
  2. ALEVE (CAPLET) [Suspect]
     Indication: ORAL PAIN
     Dosage: 2 DF, ONCE, BOTTLE COUNT 40S
     Route: 048
     Dates: start: 20110526, end: 20110526

REACTIONS (8)
  - PRURITUS GENERALISED [None]
  - SWOLLEN TONGUE [None]
  - PHARYNGEAL OEDEMA [None]
  - DYSPHAGIA [None]
  - THROAT TIGHTNESS [None]
  - ODYNOPHAGIA [None]
  - VOMITING [None]
  - HYPERSENSITIVITY [None]
